FAERS Safety Report 8986738 (Version 1)
Quarter: 2012Q4

REPORT INFORMATION
  Report Type: 
  Country: GB (occurrence: GB)
  Receive Date: 20121227
  Receipt Date: 20121227
  Transmission Date: 20130627
  Serious: Yes (Congenital Anomaly)
  Sender: FDA-Public Use
  Company Number: GB-TEVA-375905ISR

PATIENT
  Sex: Male
  Weight: 3.5 kg

DRUGS (1)
  1. QUETIAPINE [Suspect]
     Dosage: 0-8 weeks of pregnancy
     Route: 064

REACTIONS (1)
  - Anomaly of external ear congenital [Unknown]
